FAERS Safety Report 6837842-9 (Version None)
Quarter: 2010Q3

REPORT INFORMATION
  Report Type: 
  Country: None (occurrence: None)
  Receive Date: 20100713
  Receipt Date: 20070523
  Transmission Date: 20110219
  Serious: No
  Sender: FDA-Public Use
  Company Number: US-PFIZER INC-2007043392

PATIENT
  Sex: Male
  Weight: 88.5 kg

DRUGS (7)
  1. CHANTIX [Suspect]
     Indication: SMOKING CESSATION THERAPY
     Dates: start: 20070515
  2. PLAVIX [Concomitant]
  3. CARDIZEM CD [Concomitant]
  4. ALL OTHER THERAPEUTIC PRODUCTS [Concomitant]
     Dosage: 20-35 MG
  5. PAROXETINE [Concomitant]
  6. ASPIRIN [Concomitant]
  7. CRESTOR [Concomitant]

REACTIONS (3)
  - FEELING HOT [None]
  - HYPERHIDROSIS [None]
  - NAUSEA [None]
